FAERS Safety Report 6417585-6 (Version None)
Quarter: 2009Q4

REPORT INFORMATION
  Report Type: 
  Country: None (occurrence: None)
  Receive Date: 20091028
  Receipt Date: 20091022
  Transmission Date: 20100525
  Serious: Yes (Hospitalization, Other)
  Sender: FDA-Public Use
  Company Number: FR-BAYER-200936811GPV

PATIENT
  Age: 78 Year
  Sex: Male

DRUGS (4)
  1. NEXAVAR [Suspect]
     Indication: HEPATIC NEOPLASM MALIGNANT
     Dates: start: 20090701
  2. NEXAVAR [Suspect]
     Dates: start: 20090201
  3. KARDEGIC [Concomitant]
  4. TENORMIN [Concomitant]

REACTIONS (7)
  - ASCITES [None]
  - FATIGUE [None]
  - GENERAL PHYSICAL HEALTH DETERIORATION [None]
  - ISCHAEMIC STROKE [None]
  - JAUNDICE [None]
  - MUSCULAR WEAKNESS [None]
  - PALMAR-PLANTAR ERYTHRODYSAESTHESIA SYNDROME [None]
